FAERS Safety Report 23052684 (Version 1)
Quarter: 2023Q4

REPORT INFORMATION
  Report Type: Report from Study
  Country: US (occurrence: US)
  Receive Date: 20231011
  Receipt Date: 20231011
  Transmission Date: 20240109
  Serious: Yes (Hospitalization, Other)
  Sender: FDA-Public Use
  Company Number: US-SANDOZ-SDZ2023US040323

PATIENT
  Sex: Male
  Weight: 86.18 kg

DRUGS (1)
  1. TREPROSTINIL [Suspect]
     Active Substance: TREPROSTINIL
     Indication: Pulmonary arterial hypertension
     Dosage: UNK DOSE 24 NG/KG/MIN
     Route: 042

REACTIONS (1)
  - Dementia [Unknown]
